FAERS Safety Report 21004244 (Version 1)
Quarter: 2022Q2

REPORT INFORMATION
  Report Type: Spontaneous
  Country: PT (occurrence: PT)
  Receive Date: 20220624
  Receipt Date: 20220624
  Transmission Date: 20220721
  Serious: Yes (Hospitalization, Other)
  Sender: FDA-Public Use
  Company Number: PT-GSKCCFEMEA-Case-01517044_AE-59294

PATIENT

DRUGS (1)
  1. BLENREP [Suspect]
     Active Substance: BELANTAMAB MAFODOTIN-BLMF
     Indication: Product used for unknown indication
     Dosage: 2.4 MG/KG
     Dates: start: 20220524

REACTIONS (10)
  - Neurotoxicity [Unknown]
  - Thrombocytopenia [Unknown]
  - Renal failure [Unknown]
  - Fatigue [Unknown]
  - Psychomotor hyperactivity [Recovering/Resolving]
  - Hypercalcaemia [Unknown]
  - Serum ferritin increased [Unknown]
  - Blood lactate dehydrogenase increased [Unknown]
  - Blood uric acid increased [Unknown]
  - Inflammatory marker increased [Unknown]

NARRATIVE: CASE EVENT DATE: 20220101
